FAERS Safety Report 17377318 (Version 1)
Quarter: 2020Q1

REPORT INFORMATION
  Report Type: Spontaneous
  Country: TR (occurrence: TR)
  Receive Date: 20200206
  Receipt Date: 20200206
  Transmission Date: 20200409
  Serious: Yes (Other)
  Sender: FDA-Public Use
  Company Number: TR-SA-MOZO-1000712

PATIENT
  Age: 3 Year
  Sex: Female

DRUGS (2)
  1. MOZOBIL [Suspect]
     Active Substance: PLERIXAFOR
     Indication: NEPHROBLASTOMA
     Dosage: 240 UG/KG, QD
     Route: 058
  2. MOZOBIL [Suspect]
     Active Substance: PLERIXAFOR
     Indication: HAEMATOPOIETIC STEM CELL MOBILISATION

REACTIONS (2)
  - Insomnia [Recovered/Resolved]
  - Hallucination [Recovered/Resolved]
